FAERS Safety Report 24993622 (Version 1)
Quarter: 2025Q1

REPORT INFORMATION
  Report Type: Spontaneous
  Country: MY (occurrence: MY)
  Receive Date: 20250221
  Receipt Date: 20250221
  Transmission Date: 20250409
  Serious: Yes (Death, Life-Threatening, Hospitalization)
  Sender: STRIDES
  Company Number: None

PATIENT
  Age: 55 Year
  Sex: Male

DRUGS (3)
  1. PREDNISOLONE [Suspect]
     Active Substance: PREDNISOLONE
     Indication: Myelodysplastic syndrome
     Route: 065
     Dates: end: 202109
  2. CYCLOSPORINE [Suspect]
     Active Substance: CYCLOSPORINE
     Indication: Myelodysplastic syndrome
     Route: 065
     Dates: start: 202107, end: 202109
  3. ELTROMBOPAG OLAMINE [Concomitant]
     Active Substance: ELTROMBOPAG OLAMINE
     Indication: Myelodysplastic syndrome
     Route: 048
     Dates: start: 2018, end: 202109

REACTIONS (4)
  - Neutropenic sepsis [Fatal]
  - Strongyloidiasis [Fatal]
  - Pneumonia [Fatal]
  - Klebsiella infection [Fatal]

NARRATIVE: CASE EVENT DATE: 20210101
